FAERS Safety Report 5157261-3 (Version None)
Quarter: 2006Q4

REPORT INFORMATION
  Report Type: 
  Country: None (occurrence: None)
  Receive Date: 20061127
  Receipt Date: 20061122
  Transmission Date: 20070319
  Serious: Yes (Other)
  Sender: FDA-Public Use
  Company Number: GB-SP-2006-03217

PATIENT
  Age: 48 Year
  Sex: Female

DRUGS (12)
  1. IMMUCYST [Suspect]
     Indication: RENAL CELL CARCINOMA STAGE UNSPECIFIED
     Route: 043
     Dates: start: 20061102
  2. IMMUCYST [Suspect]
     Route: 043
     Dates: start: 20061102
  3. IMMUCYST [Suspect]
     Route: 043
     Dates: start: 20061102
  4. IMMUCYST [Suspect]
     Route: 043
     Dates: start: 20061102
  5. ISOSORBIDE MONONITRATE [Concomitant]
  6. FERROUS SULFATE TAB [Concomitant]
  7. ACETAMINOPHEN [Concomitant]
  8. ATORVASTATIN CALCIUM [Concomitant]
  9. CODEINE PHOSPHATE [Concomitant]
  10. BISOPROLOL FUMARATE [Concomitant]
  11. ASPIRIN [Concomitant]
  12. RAMIPRIL [Concomitant]

REACTIONS (6)
  - ALANINE AMINOTRANSFERASE INCREASED [None]
  - BLOOD ALKALINE PHOSPHATASE INCREASED [None]
  - NAUSEA [None]
  - OFF LABEL USE [None]
  - PYREXIA [None]
  - VOMITING [None]
